APPROVED DRUG PRODUCT: KAINAIR
Active Ingredient: PROPARACAINE HYDROCHLORIDE
Strength: 0.5%
Dosage Form/Route: SOLUTION/DROPS;OPHTHALMIC
Application: A088087 | Product #001
Applicant: PHARMAFAIR INC
Approved: Jun 7, 1983 | RLD: No | RS: No | Type: DISCN